FAERS Safety Report 6259195-X (Version None)
Quarter: 2009Q3

REPORT INFORMATION
  Report Type: 
  Country: None (occurrence: None)
  Receive Date: 20090707
  Receipt Date: 20090625
  Transmission Date: 20100115
  Serious: Yes (Hospitalization)
  Sender: FDA-Public Use
  Company Number: FR-GILEAD-2009-0022800

PATIENT
  Sex: Male

DRUGS (4)
  1. TRUVADA [Suspect]
     Indication: HIV INFECTION
     Route: 048
     Dates: start: 20090219
  2. EFAVIRENZ [Suspect]
     Indication: HIV INFECTION
     Route: 048
     Dates: start: 20090219, end: 20090609
  3. TMC278 PLACEBO [Suspect]
     Indication: HIV INFECTION
     Route: 048
     Dates: start: 20090219
  4. PENTACARINAT [Concomitant]
     Indication: PROPHYLAXIS

REACTIONS (2)
  - DELIRIUM [None]
  - MANIA [None]
